FAERS Safety Report 6037459-2 (Version None)
Quarter: 2009Q1

REPORT INFORMATION
  Report Type: 
  Country: None (occurrence: None)
  Receive Date: 20090114
  Receipt Date: 20090107
  Transmission Date: 20090719
  Serious: Yes (Death, Hospitalization)
  Sender: FDA-Public Use
  Company Number: US-PFIZER INC-2008069852

PATIENT
  Age: 90 Year
  Sex: Male

DRUGS (1)
  1. DETROL LA [Suspect]
     Dosage: UNK
     Dates: start: 20071001, end: 20080405

REACTIONS (2)
  - DEATH [None]
  - GALLBLADDER OPERATION [None]
